FAERS Safety Report 23816731 (Version 1)
Quarter: 2024Q2

REPORT INFORMATION
  Report Type: Spontaneous
  Country: ES (occurrence: ES)
  Receive Date: 20240504
  Receipt Date: 20240504
  Transmission Date: 20240716
  Serious: Yes (Hospitalization)
  Sender: FDA-Public Use
  Company Number: None

PATIENT
  Age: 60 Year
  Sex: Female

DRUGS (10)
  1. LEVOFLOXACIN [Suspect]
     Active Substance: LEVOFLOXACIN
     Indication: Pneumonia
     Dosage: LEVOFLOXACINO (2791A) 500.0 MG EVERY 24 HOURS
     Route: 048
     Dates: start: 20230302, end: 20230303
  2. OTILONIUM BROMIDE [Concomitant]
     Active Substance: OTILONIUM BROMIDE
     Indication: Renal colic
     Dosage: 40, 60 DRAGEES, 40.0 MG A-DECE
     Route: 048
     Dates: start: 20220916
  3. ACUOLENS [Concomitant]
     Indication: Sjogren^s syndrome
     Dosage: 3 MG/ML + 5.5 MG/ML EYELASH SOLUTION IN SINGLE-DOSE CONTAINER, 30 SINGLE-DOSE CONTAINERS OF 0.5 M...
     Route: 065
     Dates: start: 20200708
  4. CAPTOR [Concomitant]
     Indication: Product used for unknown indication
     Dosage: 75 MG/650 MG TABLETS, 60 TABLETS (BLISTER) 1.0 COMP C/12 H
     Route: 048
     Dates: start: 20220406
  5. EFFERALGAN [Concomitant]
     Active Substance: ACETAMINOPHEN
     Indication: Abdominal pain
     Dosage: 1 G EFFERVESCENT TABLETS, 40 TABLETS 1.0 G DECOCE
     Route: 048
     Dates: start: 20210209
  6. CALCIUM\CHOLECALCIFEROL [Concomitant]
     Active Substance: CALCIUM\CHOLECALCIFEROL
     Indication: Cholelithiasis
     Dosage: 25 MG, TABLETS, 60 TABLETS 25.0 MG DECO
     Route: 048
     Dates: start: 20220421
  7. BLISSEL [Concomitant]
     Indication: Dyspareunia
     Dosage: 50 MICROGRAMS/G VAGINAL GEL, 1 TUBE OF 10 G + 1 REUSABLE CANNULA + 1 REUSABLE PLUNGER 1.0 APPLICA...
     Route: 067
     Dates: start: 20210422
  8. BISOPROLOL [Concomitant]
     Active Substance: BISOPROLOL\BISOPROLOL FUMARATE
     Indication: Myocardial ischaemia
     Dosage: 28 TABLETS 7.5 MG CE
     Route: 048
     Dates: start: 20141219
  9. CITICOLINE [Concomitant]
     Active Substance: CITICOLINE
     Indication: Myocardial ischaemia
     Dosage: 30 SACHETS OF 10 ML 1000.0 MG A-CE
     Route: 048
     Dates: start: 20201106
  10. ASPIRIN [Concomitant]
     Active Substance: ASPIRIN
     Indication: Product used for unknown indication
     Dosage: EFG TABLETS, 30 TABLETS (PVC-ALUMINUM) 100.0 MG DE
     Route: 048
     Dates: start: 20170623

REACTIONS (3)
  - Hypersensitivity [Recovered/Resolved]
  - Intercepted product prescribing error [Recovered/Resolved]
  - Medication error [Recovered/Resolved]

NARRATIVE: CASE EVENT DATE: 20230303
